FAERS Safety Report 7922575-8 (Version None)
Quarter: 2011Q4

REPORT INFORMATION
  Report Type: 
  Country: None (occurrence: None)
  Receive Date: 20111117
  Receipt Date: 20101207
  Transmission Date: 20120403
  Serious: No
  Sender: FDA-Public Use
  Company Number: US-ALLERGAN-1015877US

PATIENT
  Age: 61 Year
  Sex: Female
  Weight: 67.574 kg

DRUGS (7)
  1. LEVOTHYROXINE SODIUM [Concomitant]
     Indication: THYROID DISORDER
     Dosage: UNK
  2. LANTUS [Concomitant]
     Indication: DIABETES MELLITUS
     Dosage: 40 MG, QD
  3. MONOPRIL [Concomitant]
     Indication: HYPERTENSION
     Dosage: 10 MG, QD
  4. SIMVASTATIN [Concomitant]
     Indication: PRODUCT USED FOR UNKNOWN INDICATION
     Dosage: 40 MG, QD
  5. COMBIGAN [Suspect]
     Indication: GLAUCOMA
  6. XALATAN [Suspect]
     Indication: GLAUCOMA
  7. HUMALOG [Concomitant]
     Indication: DIABETES MELLITUS
     Dosage: UNK

REACTIONS (2)
  - INTRAOCULAR PRESSURE INCREASED [None]
  - HYPOTENSION [None]
